FAERS Safety Report 5827343-9 (Version None)
Quarter: 2008Q3

REPORT INFORMATION
  Report Type: 
  Country: None (occurrence: None)
  Receive Date: 20080730
  Receipt Date: 20080722
  Transmission Date: 20090109
  Serious: Yes (Life-Threatening)
  Sender: FDA-Public Use
  Company Number: JP-SANOFI-SYNTHELABO-A01200808796

PATIENT
  Sex: Male

DRUGS (5)
  1. BETAMETHASONE [Concomitant]
     Indication: PREMEDICATION
     Dosage: UNK
     Route: 042
     Dates: start: 20080716, end: 20080716
  2. FLUOROURACIL [Suspect]
     Dosage: IV BOLUS THEN CONTINUOUS INFUSION UNK
     Route: 042
     Dates: start: 20080716, end: 20080717
  3. ELPLAT [Suspect]
     Indication: DRUG USE FOR UNKNOWN INDICATION
     Dosage: UNK
     Route: 041
     Dates: start: 20080716, end: 20080716
  4. ISOVORIN [Suspect]
     Dosage: UNK
     Route: 041
     Dates: start: 20080716, end: 20080717
  5. KYTRIL [Concomitant]
     Indication: PREMEDICATION
     Dosage: UNK
     Route: 042
     Dates: start: 20080716, end: 20080716

REACTIONS (1)
  - GASTROINTESTINAL PERFORATION [None]
